FAERS Safety Report 17454704 (Version 1)
Quarter: 2020Q1

REPORT INFORMATION
  Report Type: Spontaneous
  Country: US (occurrence: US)
  Receive Date: 20200224
  Receipt Date: 20200224
  Transmission Date: 20200409
  Serious: Yes (Disabling)
  Sender: FDA-Public Use
  Company Number: None

PATIENT
  Age: 26 Year
  Sex: Male
  Weight: 90 kg

DRUGS (10)
  1. TRAZODONE [Suspect]
     Active Substance: TRAZODONE HYDROCHLORIDE
  2. DRAMAMINE [Concomitant]
     Active Substance: DIMENHYDRINATE
  3. PEPTO-BISMOL [Concomitant]
     Active Substance: BISMUTH SUBSALICYLATE
  4. LOXAPINE. [Suspect]
     Active Substance: LOXAPINE
  5. DIAZEPAM. [Suspect]
     Active Substance: DIAZEPAM
  6. TRIHEXYPHENIDYL [Suspect]
     Active Substance: TRIHEXYPHENIDYL
  7. REXULTI [Suspect]
     Active Substance: BREXPIPRAZOLE
     Indication: PAIN
     Dosage: ?          QUANTITY:20 TABLET(S);?
     Route: 048
     Dates: start: 20190101
  8. LITHIUM. [Suspect]
     Active Substance: LITHIUM
  9. HYDROCODONE [Suspect]
     Active Substance: HYDROCODONE
  10. ALEVE [Concomitant]
     Active Substance: NAPROXEN SODIUM

REACTIONS (2)
  - Suspected product quality issue [None]
  - Drug ineffective [None]

NARRATIVE: CASE EVENT DATE: 20190101
